FAERS Safety Report 5723687-X (Version None)
Quarter: 2008Q2

REPORT INFORMATION
  Report Type: 
  Country: None (occurrence: None)
  Receive Date: 20080428
  Receipt Date: 20080414
  Transmission Date: 20081010
  Serious: Yes (Hospitalization, Other)
  Sender: FDA-Public Use
  Company Number: 2008BI010030

PATIENT
  Age: 33 Year
  Sex: Female

DRUGS (1)
  1. TYSABRI [Suspect]
     Indication: MULTIPLE SCLEROSIS
     Dosage: 300 MG;QM;IV
     Route: 042

REACTIONS (6)
  - BLOOD CULTURE POSITIVE [None]
  - CONVULSION [None]
  - ESCHERICHIA INFECTION [None]
  - FATIGUE [None]
  - PYREXIA [None]
  - VISION BLURRED [None]
